FAERS Safety Report 8824066 (Version 2)
Quarter: 2012Q4

REPORT INFORMATION
  Report Type: 
  Country: US (occurrence: US)
  Receive Date: 20121003
  Receipt Date: 20121017
  Transmission Date: 20130627
  Serious: Yes (Life-Threatening)
  Sender: FDA-Public Use
  Company Number: US-009507513-1209USA009152

PATIENT
  Sex: Male

DRUGS (1)
  1. DULERA [Suspect]
     Dosage: UNK
     Route: 055
     Dates: start: 201209, end: 201209

REACTIONS (1)
  - Angioedema [Unknown]
